FAERS Safety Report 8003090-2 (Version None)
Quarter: 2011Q4

REPORT INFORMATION
  Report Type: 
  Country: None (occurrence: None)
  Receive Date: 20111222
  Receipt Date: 20111213
  Transmission Date: 20120403
  Serious: Yes (Hospitalization)
  Sender: FDA-Public Use
  Company Number: DE-JNJFOC-20111205543

PATIENT
  Age: 24 Year
  Sex: Female
  Weight: 77 kg

DRUGS (6)
  1. REMICADE [Suspect]
     Indication: COLITIS ULCERATIVE
     Dosage: AT WEEK 0
     Route: 042
     Dates: start: 20110715
  2. REMICADE [Suspect]
     Dosage: AT WEEK 2
     Route: 042
     Dates: start: 20110729
  3. PROGRAF [Concomitant]
     Indication: COLITIS ULCERATIVE
     Dosage: FREQUENCY ^6-0-6^
     Dates: start: 20110901, end: 20111001
  4. PLEON [Concomitant]
     Indication: COLITIS ULCERATIVE
     Dates: start: 20110501, end: 20111116
  5. SCOPOLAMINE [Concomitant]
     Indication: ABDOMINAL DISCOMFORT
     Dosage: AS NEEDED
  6. REMICADE [Suspect]
     Dosage: AT WEEK 4
     Route: 042
     Dates: end: 20110826

REACTIONS (1)
  - PROCTOCOLECTOMY [None]
